FAERS Safety Report 13581709 (Version 1)
Quarter: 2017Q2

REPORT INFORMATION
  Report Type: Spontaneous
  Country: US (occurrence: US)
  Receive Date: 20170525
  Receipt Date: 20170525
  Transmission Date: 20170830
  Serious: No
  Sender: FDA-Public Use
  Company Number: US-MYLANLABS-2017M1011878

PATIENT
  Sex: Female
  Weight: 53.61 kg

DRUGS (1)
  1. BUPROPION HYDROCHLORIDE EXTENDED-RELEASE TABLETS, USP (SR) [Suspect]
     Active Substance: BUPROPION HYDROCHLORIDE
     Indication: DEPRESSION
     Dosage: 150 MG, 2 TABLETS IN AM AND 1 TABLET IN PM
     Route: 048

REACTIONS (2)
  - Drug dispensing error [Unknown]
  - No adverse event [Unknown]
